FAERS Safety Report 13121667 (Version 3)
Quarter: 2017Q1

REPORT INFORMATION
  Report Type: Spontaneous
  Country: US (occurrence: US)
  Receive Date: 20170117
  Receipt Date: 20170123
  Transmission Date: 20170428
  Serious: Yes (Hospitalization, Other)
  Sender: FDA-Public Use
  Company Number: US-PFIZER INC-2017015858

PATIENT
  Age: 63 Year
  Sex: Female
  Weight: 61.23 kg

DRUGS (2)
  1. HYDROCODONE [Concomitant]
     Active Substance: HYDROCODONE
     Indication: ARTHRITIS
     Dosage: 1 DF, 3X/DAY (ONE IN THE MORNING, ONE THE EVENING AND ONE SOMETIME IN THE MIDDLE OF THE NIGHT)
  2. XELJANZ XR [Suspect]
     Active Substance: TOFACITINIB CITRATE
     Indication: ARTHRITIS
     Dosage: 11 MG, 1X/DAY
     Route: 048

REACTIONS (4)
  - Tuberculosis [Unknown]
  - Haemoptysis [Recovered/Resolved]
  - Mycobacterial infection [Unknown]
  - Pain [Not Recovered/Not Resolved]

NARRATIVE: CASE EVENT DATE: 201611
